FAERS Safety Report 23371818 (Version 2)
Quarter: 2024Q2

REPORT INFORMATION
  Report Type: Spontaneous
  Country: US (occurrence: US)
  Receive Date: 20240105
  Receipt Date: 20240509
  Transmission Date: 20240716
  Serious: Yes (Other)
  Sender: FDA-Public Use
  Company Number: US-PFIZER INC-PV202300209151

PATIENT
  Age: 67 Year
  Sex: Female

DRUGS (10)
  1. XELJANZ [Suspect]
     Active Substance: TOFACITINIB CITRATE
     Indication: Rheumatoid arthritis
     Dosage: 5 MG, 2X/DAY
     Route: 048
     Dates: end: 202201
  2. XELJANZ [Suspect]
     Active Substance: TOFACITINIB CITRATE
     Indication: Osteoarthritis
     Dosage: 5 MG, 1X/DAY
     Route: 048
     Dates: start: 202309
  3. AMLODIPINE [Concomitant]
     Active Substance: AMLODIPINE BESYLATE
  4. CARVEDILOL [Concomitant]
     Active Substance: CARVEDILOL
  5. FUROSEMIDE [Concomitant]
     Active Substance: FUROSEMIDE
  6. PREDNISONE [Concomitant]
     Active Substance: PREDNISONE
  7. TRAMADOL [Concomitant]
     Active Substance: TRAMADOL\TRAMADOL HYDROCHLORIDE
  8. SULFASALAZINE [Concomitant]
     Active Substance: SULFASALAZINE
  9. SPIRONOLACTONE [Concomitant]
     Active Substance: SPIRONOLACTONE
  10. LOVASTATIN [Concomitant]
     Active Substance: LOVASTATIN

REACTIONS (2)
  - Renal cancer [Unknown]
  - Therapeutic product effect incomplete [Unknown]
